FAERS Safety Report 8800296 (Version 2)
Quarter: 2013Q4

REPORT INFORMATION
  Report Type: Spontaneous
  Country: TR (occurrence: TR)
  Receive Date: 20120921
  Receipt Date: 20131008
  Transmission Date: 20140711
  Serious: Yes (Other)
  Sender: FDA-Public Use
  Company Number: PHHY2012TR080071

PATIENT
  Sex: Female

DRUGS (11)
  1. OCTREOTIDE [Suspect]
     Indication: HYPERINSULINISM
     Dosage: 20 UG/KG, PER DAY
  2. OCTREOTIDE [Suspect]
     Dosage: 40 UG/KG, PER DAY
  3. OCTREOTIDE [Suspect]
     Dosage: 15 UG/KG, PER DAY
  4. OCTREOTIDE [Suspect]
     Dosage: 7 UG/KG, PER DAY
  5. OCTREOTIDE [Suspect]
     Dosage: 7 UG/KG, PER DAY
  6. OCTREOTIDE [Suspect]
     Dosage: 5 UG/KG, PER DAY
  7. ESIDREX [Suspect]
     Indication: HYPERINSULINISM
     Dosage: 8 MG/KG, PER DAY
  8. DIAZOXIDE [Suspect]
     Indication: HYPERINSULINISM
     Dosage: 10 MG/KG, PER DAY
  9. DIAZOXIDE [Suspect]
     Dosage: 20 MG/KG, PER DAY
  10. DIAZOXIDE [Suspect]
     Dosage: 8 MG/KG, PER DAY
  11. PHENOBARBITAL [Concomitant]
     Indication: GRAND MAL CONVULSION
     Dosage: 5 MG/KG, PER DAY

REACTIONS (5)
  - Growth retardation [Unknown]
  - Drug withdrawal convulsions [Unknown]
  - Developmental delay [Unknown]
  - Epilepsy [Unknown]
  - Cholestasis [Unknown]
